FAERS Safety Report 15412330 (Version 5)
Quarter: 2019Q2

REPORT INFORMATION
  Report Type: Report from Study
  Country: US (occurrence: US)
  Receive Date: 20180921
  Receipt Date: 20190603
  Transmission Date: 20190711
  Serious: Yes (Other)
  Sender: FDA-Public Use
  Company Number: PHEH2018US038461

PATIENT
  Sex: Female

DRUGS (1)
  1. GILENYA [Suspect]
     Active Substance: FINGOLIMOD HYDROCHLORIDE
     Indication: RELAPSING MULTIPLE SCLEROSIS
     Dosage: 0.5 MG, QD
     Route: 048
     Dates: start: 20180713

REACTIONS (10)
  - Fall [Unknown]
  - Delusional disorder, unspecified type [Unknown]
  - Cystitis [Unknown]
  - Pain [Not Recovered/Not Resolved]
  - Gait disturbance [Unknown]
  - Pollakiuria [Unknown]
  - Arthropathy [Unknown]
  - Chest injury [Unknown]
  - Multiple sclerosis relapse [Unknown]
  - Balance disorder [Unknown]
